FAERS Safety Report 14525969 (Version 1)
Quarter: 2018Q1

REPORT INFORMATION
  Report Type: Report from Study
  Country: US (occurrence: US)
  Receive Date: 20180213
  Receipt Date: 20180213
  Transmission Date: 20180509
  Serious: Yes (Other)
  Sender: FDA-Public Use
  Company Number: US-AUROBINDO-AUR-APL-2018-005930

PATIENT
  Age: 7 Year
  Sex: Female

DRUGS (3)
  1. METHYLPREDNISOLONE. [Suspect]
     Active Substance: METHYLPREDNISOLONE
     Dosage: 2 MG/KG, DAILY
     Route: 042
  2. METHYLPREDNISOLONE. [Suspect]
     Active Substance: METHYLPREDNISOLONE
     Indication: VENOOCCLUSIVE DISEASE
     Dosage: 500 MG/M2, EVERY 12 HOURS FOR THREE DAYS (TOTAL 6 DOSES)
     Route: 042
  3. DEFIBROTIDE [Concomitant]
     Active Substance: DEFIBROTIDE (BOVINE)
     Indication: VENOOCCLUSIVE DISEASE

REACTIONS (3)
  - Lung disorder [Unknown]
  - Multiple organ dysfunction syndrome [Unknown]
  - Hyperglycaemia [Unknown]
